FAERS Safety Report 9664831 (Version 1)
Quarter: 2013Q4

REPORT INFORMATION
  Report Type: Spontaneous
  Country: GB (occurrence: None)
  Receive Date: 20131031
  Receipt Date: 20131031
  Transmission Date: 20140711
  Serious: Yes (Other)
  Sender: FDA-Public Use
  Company Number: AUR-APL-2013-05765

PATIENT
  Age: 34 Year
  Sex: Male
  Weight: 65.2 kg

DRUGS (3)
  1. MIRTAZAPINE (MIRTAZAPINE) [Suspect]
     Dosage: UNKNOWN
     Dates: start: 20130419, end: 20130614
  2. DIAZEPAM (DIAZEPAM) [Concomitant]
  3. TRAZODONE (TRAZODONE) [Concomitant]

REACTIONS (4)
  - Agitation [None]
  - Irritability [None]
  - Mood swings [None]
  - Nightmare [None]
